FAERS Safety Report 15839159 (Version 2)
Quarter: 2019Q3

REPORT INFORMATION
  Report Type: Report from Study
  Country: US (occurrence: US)
  Receive Date: 20190117
  Receipt Date: 20190823
  Transmission Date: 20191004
  Serious: Yes (Hospitalization, Other)
  Sender: FDA-Public Use
  Company Number: PHHY2018US108722

PATIENT
  Age: 22 Year
  Sex: Female

DRUGS (1)
  1. KYMRIAH [Suspect]
     Active Substance: TISAGENLECLEUCEL
     Indication: PRODUCT USED FOR UNKNOWN INDICATION
     Route: 065

REACTIONS (11)
  - Myalgia [Unknown]
  - Chills [Unknown]
  - Decreased appetite [Not Recovered/Not Resolved]
  - Fatigue [Not Recovered/Not Resolved]
  - Hyperphosphataemia [Unknown]
  - Headache [Unknown]
  - Leukopenia [Not Recovered/Not Resolved]
  - Platelet count decreased [Unknown]
  - Oropharyngeal pain [Not Recovered/Not Resolved]
  - Dyspnoea [Unknown]
  - Hypogammaglobulinaemia [Not Recovered/Not Resolved]

NARRATIVE: CASE EVENT DATE: 20180705
